FAERS Safety Report 4321953-6 (Version None)
Quarter: 2004Q1

REPORT INFORMATION
  Report Type: 
  Country: None (occurrence: None)
  Receive Date: 20040323
  Receipt Date: 20040316
  Transmission Date: 20041129
  Serious: Yes (Other)
  Sender: FDA-Public Use
  Company Number: WAES 0403GBR00187

PATIENT
  Age: 74 Year
  Sex: Female
  Weight: 61 kg

DRUGS (5)
  1. ASPIRIN [Concomitant]
     Route: 048
  2. ATENOLOL [Concomitant]
     Route: 048
  3. BENDROFLUMETHIAZIDE [Concomitant]
     Route: 048
  4. DOXEPIN HYDROCHLORIDE [Concomitant]
     Route: 048
  5. ZOCOR [Suspect]
     Indication: PROPHYLAXIS
     Route: 048
     Dates: start: 20040216, end: 20040223

REACTIONS (1)
  - LOSS OF CONSCIOUSNESS [None]
